FAERS Safety Report 9255537 (Version 1)
Quarter: 2013Q2

REPORT INFORMATION
  Report Type: Spontaneous
  Country: US (occurrence: US)
  Receive Date: 20130425
  Receipt Date: 20130425
  Transmission Date: 20140414
  Serious: Yes (Other)
  Sender: FDA-Public Use
  Company Number: US-ASTRAZENECA-2013SE26001

PATIENT
  Sex: Female

DRUGS (2)
  1. NEXIUM [Suspect]
     Indication: GASTROOESOPHAGEAL REFLUX DISEASE
     Route: 048
  2. OMEPRAZOLE MAGNESIUM CVS OTC BRAND (NON AZ) [Suspect]
     Indication: GASTROOESOPHAGEAL REFLUX DISEASE
     Dosage: 20.6 MG, MULTIPLE DOSES A DAY
     Route: 048

REACTIONS (12)
  - Transient ischaemic attack [Unknown]
  - Dysphonia [Unknown]
  - Memory impairment [Unknown]
  - Intervertebral disc degeneration [Unknown]
  - Nerve injury [Unknown]
  - Device difficult to use [Unknown]
  - Peripheral nerve injury [Unknown]
  - Intentional drug misuse [Unknown]
  - Condition aggravated [None]
  - Injury associated with device [None]
  - Product substitution issue [None]
  - Drug effect decreased [None]
